FAERS Safety Report 19298940 (Version 19)
Quarter: 2021Q4

REPORT INFORMATION
  Report Type: Report from Study
  Country: None (occurrence: US)
  Receive Date: 20210525
  Receipt Date: 20211026
  Transmission Date: 20220303
  Serious: Yes (Life-Threatening, Hospitalization, Other)
  Sender: FDA-Public Use
  Company Number: US-ABBVIE-21K-163-3919346-00

PATIENT
  Age: 83 Year
  Sex: Male
  Weight: 68.1 kg

DRUGS (31)
  1. IMBRUVICA [Suspect]
     Active Substance: IBRUTINIB
     Indication: Chronic lymphocytic leukaemia
     Route: 048
     Dates: start: 20170613, end: 20200623
  2. LASIX [Concomitant]
     Active Substance: FUROSEMIDE
     Indication: Atrial fibrillation
     Dates: start: 20150515
  3. LASIX [Concomitant]
     Active Substance: FUROSEMIDE
     Indication: Hypertension
  4. PREDNISONE [Concomitant]
     Active Substance: PREDNISONE
     Indication: Swelling
     Dates: start: 20140722
  5. PREDNISONE [Concomitant]
     Active Substance: PREDNISONE
     Indication: Aphthous ulcer
  6. ROSUVASTATIN CALCIUM [Concomitant]
     Active Substance: ROSUVASTATIN CALCIUM
     Indication: Hyperlipidaemia
     Dates: start: 20190319
  7. POLYETHYLENE GLYCOLS [Concomitant]
     Active Substance: POLYETHYLENE GLYCOLS
     Indication: Constipation
     Dosage: 17 G, PO, PRN 12 HOURS
     Route: 048
  8. GLUCOSAMINE + CHONDORITIN [Concomitant]
     Indication: Arthralgia
     Dosage: 500-400 MG
     Route: 048
     Dates: start: 20200701
  9. GLUCOSAMINE + CHONDORITIN [Concomitant]
     Indication: Joint stiffness
  10. CENTRUM SILVER ULTRA MENS PO [Concomitant]
     Indication: Supplementation therapy
     Dates: start: 20170124
  11. CENTRUM SILVER ULTRA MENS PO [Concomitant]
     Indication: Vitamin supplementation
  12. LACTOBACILLUS ACIDOPHILUS [Concomitant]
     Active Substance: LACTOBACILLUS ACIDOPHILUS
     Indication: Product used for unknown indication
     Route: 048
  13. MUPIROCIN [Concomitant]
     Active Substance: MUPIROCIN
     Indication: Product used for unknown indication
     Dosage: 2 % OINTMENT
     Route: 061
  14. RESTORA [Concomitant]
     Indication: Product used for unknown indication
     Route: 048
     Dates: start: 20170124
  15. THERA [Concomitant]
     Indication: Product used for unknown indication
     Route: 048
  16. FUROSEMIDE [Concomitant]
     Active Substance: FUROSEMIDE
     Indication: Atrial fibrillation
     Dates: start: 20150505
  17. FUROSEMIDE [Concomitant]
     Active Substance: FUROSEMIDE
     Indication: Hypertension
  18. APIXABAN [Concomitant]
     Active Substance: APIXABAN
     Indication: Thrombosis prophylaxis
     Route: 048
  19. CRESTOR [Concomitant]
     Active Substance: ROSUVASTATIN CALCIUM
     Indication: Hyperlipidaemia
     Route: 048
     Dates: start: 20170124
  20. EPINEPHRINE [Concomitant]
     Active Substance: EPINEPHRINE
     Indication: Product used for unknown indication
     Route: 048
  21. ACETAMINOPHEN\HYDROCODONE [Concomitant]
     Active Substance: ACETAMINOPHEN\HYDROCODONE
     Indication: Product used for unknown indication
     Dosage: 5-325 MG PER TABLET, AS NEEDED
     Route: 048
  22. METOPROLOL TARTRATE [Concomitant]
     Active Substance: METOPROLOL TARTRATE
     Indication: Hypertension
     Route: 048
  23. MUPIROCIN [Concomitant]
     Active Substance: MUPIROCIN
     Indication: Product used for unknown indication
     Dosage: AS NEEDED
     Route: 061
  24. NITROGLYCERIN [Concomitant]
     Active Substance: NITROGLYCERIN
     Indication: Chest pain
     Dosage: SL, AS NEEDED
     Route: 060
  25. POLYETHYLENE GLYCOLS [Concomitant]
     Active Substance: POLYETHYLENE GLYCOLS
     Indication: Product used for unknown indication
     Dosage: AS NEEDED FOR UP TO 3 DAYS
     Route: 048
  26. OMEGA-3-ACID ETHYL ESTERS [Concomitant]
     Active Substance: OMEGA-3-ACID ETHYL ESTERS
     Indication: Hyperlipidaemia
     Route: 048
  27. TAMSULOSIN [Concomitant]
     Active Substance: TAMSULOSIN
     Indication: Product used for unknown indication
     Route: 048
  28. SILVADENE [Concomitant]
     Active Substance: SILVER SULFADIAZINE
     Indication: Atrial fibrillation
     Dates: start: 20200225, end: 20200701
  29. SILVADENE [Concomitant]
     Active Substance: SILVER SULFADIAZINE
     Indication: Hypertension
  30. RESTORA [Concomitant]
     Indication: Constipation
     Dates: start: 20170124
  31. LEVAQUIN [Concomitant]
     Active Substance: LEVOFLOXACIN
     Indication: Infection
     Route: 048
     Dates: start: 20160406, end: 20200701

REACTIONS (9)
  - Aortic stenosis [Recovered/Resolved]
  - Deep vein thrombosis [Recovered/Resolved]
  - Confusional state [Recovered/Resolved]
  - Hypotension [Recovered/Resolved]
  - Cellulitis [Recovered/Resolved]
  - Atrial fibrillation [Recovered/Resolved]
  - Soft tissue infection [Recovered/Resolved]
  - Bacterial sepsis [Recovered/Resolved]
  - Atrial fibrillation [Recovered/Resolved]

NARRATIVE: CASE EVENT DATE: 20200422
